FAERS Safety Report 7611813-7 (Version None)
Quarter: 2011Q3

REPORT INFORMATION
  Report Type: 
  Country: None (occurrence: None)
  Receive Date: 20110715
  Receipt Date: 20110707
  Transmission Date: 20111222
  Serious: Yes (Other)
  Sender: FDA-Public Use
  Company Number: US-MPIJNJ-2010-04916

PATIENT
  Sex: Female

DRUGS (3)
  1. RITUXIMAB [Suspect]
  2. ZEVALIN [Suspect]
  3. VELCADE [Suspect]
     Dosage: 1.6 UNK, UNK

REACTIONS (3)
  - VENTRICULAR EXTRASYSTOLES [None]
  - PALPITATIONS [None]
  - DYSPNOEA [None]
